FAERS Safety Report 14131008 (Version 1)
Quarter: 2017Q4

REPORT INFORMATION
  Report Type: Spontaneous
  Country: FR (occurrence: FR)
  Receive Date: 20171026
  Receipt Date: 20171026
  Transmission Date: 20180321
  Serious: Yes (Other)
  Sender: FDA-Public Use
  Company Number: FR-MERCK KGAA-2031626

PATIENT
  Age: 78 Year
  Sex: Female

DRUGS (3)
  1. ASPIRIN. [Concomitant]
     Active Substance: ASPIRIN
     Dates: start: 2013
  2. LEVOTHYROX [Suspect]
     Active Substance: LEVOTHYROXINE
  3. NOVOTHYROX [Suspect]
     Active Substance: LEVOTHYROXINE SODIUM
     Indication: HYPOTHYROIDISM
     Dates: end: 20171011

REACTIONS (9)
  - Feeling abnormal [None]
  - Feeling of body temperature change [None]
  - Drug intolerance [None]
  - Hyperhidrosis [None]
  - Head discomfort [None]
  - Speech disorder [None]
  - Intervertebral disc protrusion [None]
  - Fatigue [None]
  - Palpitations [None]
